FAERS Safety Report 10484858 (Version 2)
Quarter: 2014Q3

REPORT INFORMATION
  Report Type: Report from Study
  Country: BG (occurrence: BG)
  Receive Date: 20140930
  Receipt Date: 20140930
  Transmission Date: 20150326
  Serious: Yes (Death, Life-Threatening)
  Sender: FDA-Public Use
  Company Number: BG-BRISTOL-MYERS SQUIBB COMPANY-21246954

PATIENT
  Age: 61 Year
  Sex: Female

DRUGS (3)
  1. AVASTIN [Suspect]
     Active Substance: BEVACIZUMAB
     Indication: BREAST CANCER METASTATIC
     Dosage: ON 08/JUL/2014,RECEIVED LAST DOSE OF BLINDED BEVACIZUMAB
     Route: 042
     Dates: start: 20130923
  2. PACLITAXEL. [Suspect]
     Active Substance: PACLITAXEL
     Indication: BREAST CANCER METASTATIC
     Dosage: MOST RECENT DOSE (160 MG) OF PACLITAXEL PRIOR TO SAE ONSET 08-JUL-2014
     Route: 042
     Dates: start: 20130923
  3. PLACEBO [Suspect]
     Active Substance: UNSPECIFIED INGREDIENT
     Indication: BREAST CANCER METASTATIC
     Route: 042
     Dates: start: 20130923

REACTIONS (1)
  - Hyperbilirubinaemia [Fatal]

NARRATIVE: CASE EVENT DATE: 20140715
